FAERS Safety Report 19590659 (Version 1)
Quarter: 2021Q3

REPORT INFORMATION
  Report Type: Spontaneous
  Country: US (occurrence: US)
  Receive Date: 20210721
  Receipt Date: 20210721
  Transmission Date: 20211014
  Serious: No
  Sender: FDA-Public Use
  Company Number: US-SA-2021SA234638

PATIENT
  Age: 67 Year
  Sex: Female

DRUGS (2)
  1. ARAVA [Suspect]
     Active Substance: LEFLUNOMIDE
     Dosage: ON 14APR2021 SHE WAS TAKING THE FULL DOSE
     Dates: start: 20210414, end: 20210521
  2. ARAVA [Suspect]
     Active Substance: LEFLUNOMIDE
     Indication: RHEUMATOID ARTHRITIS
     Dosage: 1/4 OF A TABLET THEN 1/3 OF A TABLET
     Dates: start: 20210402

REACTIONS (6)
  - Wrong technique in product usage process [Unknown]
  - Yellow skin [Unknown]
  - Diarrhoea [Unknown]
  - Dysgeusia [Unknown]
  - Chills [Recovering/Resolving]
  - Blood triglycerides increased [Unknown]

NARRATIVE: CASE EVENT DATE: 20210402
